FAERS Safety Report 23065518 (Version 1)
Quarter: 2023Q4

REPORT INFORMATION
  Report Type: Spontaneous
  Country: US (occurrence: US)
  Receive Date: 20231013
  Receipt Date: 20231013
  Transmission Date: 20240109
  Serious: Yes (Hospitalization)
  Sender: FDA-Public Use
  Company Number: US-PRINSTON PHARMACEUTICAL INC.-2023PRN00519

PATIENT
  Age: 21 Year
  Sex: Male

DRUGS (1)
  1. AMPHETAMINE [Suspect]
     Active Substance: AMPHETAMINE

REACTIONS (6)
  - Serotonin syndrome [Recovering/Resolving]
  - Delirium [Recovering/Resolving]
  - Metabolic encephalopathy [Recovering/Resolving]
  - Toxic leukoencephalopathy [Recovering/Resolving]
  - Encephalopathy [Recovering/Resolving]
  - Neuroleptic malignant syndrome [Recovering/Resolving]
